FAERS Safety Report 5615555-9 (Version None)
Quarter: 2008Q1

REPORT INFORMATION
  Report Type: 
  Country: None (occurrence: None)
  Receive Date: 20080205
  Receipt Date: 20080205
  Transmission Date: 20080703
  Serious: Yes (Hospitalization, Other)
  Sender: FDA-Public Use
  Company Number: None

PATIENT
  Age: 53 Year
  Sex: Female
  Weight: 99.7913 kg

DRUGS (2)
  1. CYMBALTA [Suspect]
     Indication: DEPRESSION
     Dosage: 1 CAPSULE  DAILY  PO
     Route: 048
     Dates: start: 20061120, end: 20071013
  2. CYMBALTA [Suspect]
     Indication: DEPRESSION
     Dosage: 1 CAPSULE  DAILY PO
     Route: 048
     Dates: start: 20061120, end: 20071013

REACTIONS (24)
  - ABASIA [None]
  - AGITATION [None]
  - BALANCE DISORDER [None]
  - DECREASED ACTIVITY [None]
  - DEPRESSION [None]
  - DIZZINESS [None]
  - EMOTIONAL DISORDER [None]
  - GASTROINTESTINAL DISORDER [None]
  - HOSTILITY [None]
  - HOT FLUSH [None]
  - HYPERHIDROSIS [None]
  - IMPAIRED DRIVING ABILITY [None]
  - IMPAIRED WORK ABILITY [None]
  - INSOMNIA [None]
  - MALAISE [None]
  - MEMORY IMPAIRMENT [None]
  - MIGRAINE [None]
  - NERVOUS SYSTEM DISORDER [None]
  - PAIN [None]
  - STRESS [None]
  - TREMOR [None]
  - VERTIGO [None]
  - VERTIGO POSITIONAL [None]
  - WITHDRAWAL SYNDROME [None]
